FAERS Safety Report 5207167-6 (Version None)
Quarter: 2007Q1

REPORT INFORMATION
  Report Type: 
  Country: None (occurrence: None)
  Receive Date: 20070112
  Receipt Date: 20070108
  Transmission Date: 20070707
  Serious: Yes (Other)
  Sender: FDA-Public Use
  Company Number: FR-SANOFI-SYNTHELABO-A02200700027

PATIENT
  Age: 59 Year
  Sex: Male

DRUGS (2)
  1. ELOXATIN [Suspect]
     Indication: COLORECTAL CANCER
     Route: 042
     Dates: start: 20061220, end: 20061220
  2. CALCIUM MAGNESIUM [Concomitant]
     Route: 042
     Dates: start: 20061220, end: 20061220

REACTIONS (2)
  - LARYNGOSPASM [None]
  - URTICARIA [None]
